FAERS Safety Report 6653028-5 (Version None)
Quarter: 2010Q1

REPORT INFORMATION
  Report Type: 
  Country: None (occurrence: None)
  Receive Date: 20100326
  Receipt Date: 20100316
  Transmission Date: 20100710
  Serious: Yes (Other)
  Sender: FDA-Public Use
  Company Number: PHHY2009BR57041

PATIENT
  Age: 81 Year
  Sex: Male

DRUGS (3)
  1. ZOMETA [Suspect]
     Indication: METASTASES TO BONE
     Dosage: UNK
     Dates: start: 20081101
  2. ZOMETA [Suspect]
     Indication: PROSTATE CANCER
  3. CHEMOTHERAPEUTICS NOS [Concomitant]

REACTIONS (7)
  - ASTHENIA [None]
  - DEPRESSION [None]
  - DIVERTICULUM [None]
  - GASTROINTESTINAL TRACT ADENOMA [None]
  - INTESTINAL HAEMORRHAGE [None]
  - POLYP [None]
  - WEIGHT DECREASED [None]
